FAERS Safety Report 16575293 (Version 1)
Quarter: 2019Q3

REPORT INFORMATION
  Report Type: Spontaneous
  Country: US (occurrence: US)
  Receive Date: 20190716
  Receipt Date: 20190716
  Transmission Date: 20191004
  Serious: No
  Sender: FDA-Public Use
  Company Number: US-JNJFOC-20190713913

PATIENT
  Age: 8 Decade
  Sex: Female
  Weight: 77.18 kg

DRUGS (1)
  1. TYLENOL EXTRA STRENGTH [Suspect]
     Active Substance: ACETAMINOPHEN
     Indication: NEURALGIA
     Dosage: 2 TABLETS, LESS THAN FOUR HOURS APART POSSIBLY TWICE DAILY
     Route: 048

REACTIONS (1)
  - Extra dose administered [Unknown]
